APPROVED DRUG PRODUCT: METHYLPREDNISOLONE ACETATE
Active Ingredient: METHYLPREDNISOLONE ACETATE
Strength: 80MG/ML
Dosage Form/Route: INJECTABLE;INJECTION
Application: A086903 | Product #002
Applicant: EPIC PHARMA LLC
Approved: Oct 20, 1982 | RLD: No | RS: No | Type: DISCN